FAERS Safety Report 4735045-5 (Version None)
Quarter: 2005Q3

REPORT INFORMATION
  Report Type: 
  Country: None (occurrence: None)
  Receive Date: 20050804
  Receipt Date: 20050303
  Transmission Date: 20060218
  Serious: Yes (Hospitalization)
  Sender: FDA-Public Use
  Company Number: US-MERCK-0503USA01354

PATIENT
  Age: 65 Year
  Sex: Male
  Weight: 91 kg

DRUGS (4)
  1. VIOXX [Suspect]
     Indication: BACK PAIN
     Route: 048
     Dates: start: 20040101, end: 20040701
  2. VIOXX [Suspect]
     Indication: SURGERY
     Route: 048
     Dates: start: 20040101, end: 20040701
  3. PAXIL [Concomitant]
     Route: 065
  4. KLONOPIN [Concomitant]
     Route: 065

REACTIONS (8)
  - CARDIAC DISORDER [None]
  - CARDIOPULMONARY FAILURE [None]
  - DYSPEPSIA [None]
  - HYPERTENSION [None]
  - PAIN [None]
  - PROSTATITIS [None]
  - RESPIRATORY DISORDER [None]
  - SLEEP DISORDER [None]
